FAERS Safety Report 9788857 (Version 1)
Quarter: 2013Q4

REPORT INFORMATION
  Report Type: Report from Study
  Country: JP (occurrence: JP)
  Receive Date: 20131230
  Receipt Date: 20131230
  Transmission Date: 20140711
  Serious: Yes (Other)
  Sender: FDA-Public Use
  Company Number: JP-GLAXOSMITHKLINE-B0907574A

PATIENT
  Age: 58 Year
  Sex: Female
  Weight: 45 kg

DRUGS (5)
  1. VOTRIENT 200MG [Suspect]
     Indication: ENDOMETRIAL STROMAL SARCOMA
     Dosage: 800MG PER DAY
     Route: 048
     Dates: start: 20130216, end: 20130312
  2. VOTRIENT 200MG [Suspect]
     Indication: ENDOMETRIAL STROMAL SARCOMA
     Dosage: 800MG PER DAY
     Route: 048
     Dates: start: 20130326, end: 20130422
  3. LOXOPROFEN [Concomitant]
     Indication: ENDOMETRIAL STROMAL SARCOMA
     Route: 048
  4. TAMIFLU [Concomitant]
     Route: 048
  5. XYZAL [Concomitant]
     Route: 048

REACTIONS (9)
  - Decreased appetite [Recovering/Resolving]
  - Skin disorder [Recovering/Resolving]
  - Diarrhoea [Recovering/Resolving]
  - Nausea [Recovered/Resolved]
  - Diarrhoea [Recovered/Resolved]
  - Aspartate aminotransferase increased [Recovering/Resolving]
  - Alanine aminotransferase increased [Recovering/Resolving]
  - Blood alkaline phosphatase increased [Recovering/Resolving]
  - Hypertension [Recovered/Resolved]
